FAERS Safety Report 6622810-2 (Version None)
Quarter: 2010Q1

REPORT INFORMATION
  Report Type: 
  Country: None (occurrence: None)
  Receive Date: 20100310
  Receipt Date: 20100126
  Transmission Date: 20100710
  Serious: Yes (Other)
  Sender: FDA-Public Use
  Company Number: US-JNJFOC-20100111100

PATIENT
  Sex: Male
  Weight: 83.01 kg

DRUGS (5)
  1. LEVAQUIN [Suspect]
     Indication: SINUSITIS
     Route: 065
     Dates: start: 20100118, end: 20100122
  2. METFORMIN HYDROCHLORIDE [Concomitant]
     Indication: DIABETES MELLITUS
     Route: 048
     Dates: start: 20091201
  3. ZYLOL [Concomitant]
     Indication: ANXIETY
     Route: 048
     Dates: start: 20091218
  4. ZYLOL [Concomitant]
     Indication: DEPRESSION
     Route: 048
     Dates: start: 20091218
  5. CRESTOR [Concomitant]
     Indication: BLOOD CHOLESTEROL
     Route: 048
     Dates: start: 20091228

REACTIONS (5)
  - CONTUSION [None]
  - DIARRHOEA [None]
  - EPISTAXIS [None]
  - ERYTHEMA [None]
  - HAEMOPTYSIS [None]
